FAERS Safety Report 7986454-2 (Version None)
Quarter: 2011Q4

REPORT INFORMATION
  Report Type: 
  Country: None (occurrence: None)
  Receive Date: 20111216
  Receipt Date: 20110715
  Transmission Date: 20120403
  Serious: No
  Sender: FDA-Public Use
  Company Number: US-BRISTOL-MYERS SQUIBB COMPANY-15906167

PATIENT
  Age: 50 Year
  Sex: Female

DRUGS (1)
  1. ABILIFY [Suspect]
     Indication: DEPRESSION
     Dosage: A FEW MONTHS AGO

REACTIONS (2)
  - FEELING JITTERY [None]
  - GASTROENTERITIS VIRAL [None]
